FAERS Safety Report 10423963 (Version 2)
Quarter: 2014Q3

REPORT INFORMATION
  Report Type: Spontaneous
  Country: IT (occurrence: IT)
  Receive Date: 20140902
  Receipt Date: 20140929
  Transmission Date: 20150326
  Serious: Yes (Other)
  Sender: FDA-Public Use
  Company Number: IT-SA-2014SA116069

PATIENT
  Age: 29 Year
  Sex: Female

DRUGS (1)
  1. FERLIXIT [Suspect]
     Active Substance: FERROUS GLUCONATE
     Indication: IRON DEFICIENCY ANAEMIA
     Dosage: 62.5MG/5ML SOLUTION FOR ORAL USE NAD INTRAVENOUS USE 5 VIALS OF 5 ML
     Route: 042
     Dates: start: 20140813, end: 20140814

REACTIONS (5)
  - Condition aggravated [Recovered/Resolved]
  - Dysphonia [Recovered/Resolved]
  - Drug hypersensitivity [Recovered/Resolved]
  - Paraesthesia [Recovered/Resolved]
  - Localised oedema [Recovered/Resolved]

NARRATIVE: CASE EVENT DATE: 20140814
